FAERS Safety Report 5867274-1 (Version None)
Quarter: 2008Q3

REPORT INFORMATION
  Report Type: 
  Country: None (occurrence: None)
  Receive Date: 20080829
  Receipt Date: 20080829
  Transmission Date: 20090109
  Serious: Yes (Hospitalization)
  Sender: FDA-Public Use
  Company Number: None

PATIENT
  Sex: Female
  Weight: 68.8 kg

DRUGS (3)
  1. CARBOPLATIN [Suspect]
     Dosage: 536 MG
  2. TAXOL [Suspect]
     Dosage: 312 MG
  3. NEULASTA [Suspect]
     Dosage: 6 MG

REACTIONS (11)
  - ABDOMINAL DISTENSION [None]
  - ABDOMINAL PAIN [None]
  - ASTHENIA [None]
  - DECREASED ACTIVITY [None]
  - DIARRHOEA [None]
  - DIVERTICULUM INTESTINAL [None]
  - HAEMORRHOIDS [None]
  - HYPOPHAGIA [None]
  - NAUSEA [None]
  - RECTAL HAEMORRHAGE [None]
  - VAGINAL HAEMORRHAGE [None]
